FAERS Safety Report 9228069 (Version 2)
Quarter: 2013Q2

REPORT INFORMATION
  Report Type: Spontaneous
  Country: US (occurrence: US)
  Receive Date: 20130412
  Receipt Date: 20130625
  Transmission Date: 20140414
  Serious: Yes (Life-Threatening, Other)
  Sender: FDA-Public Use
  Company Number: US-ROCHE-1209721

PATIENT
  Age: 40 Year
  Sex: Male

DRUGS (4)
  1. ACTILYSE [Suspect]
     Indication: PLEURAL EFFUSION
     Dosage: 25 MG/100 ML NS
     Route: 050
  2. HEPARIN [Suspect]
     Route: 065
  3. ASPIRIN [Suspect]
     Indication: CORONARY ARTERY DISEASE
     Route: 065
  4. VITAMIN K [Concomitant]
     Indication: VITAMIN K DEFICIENCY

REACTIONS (8)
  - Haemothorax [Recovered/Resolved]
  - Cardiac arrest [Recovered/Resolved]
  - Pleural haemorrhage [Recovered/Resolved]
  - Dyspnoea [Recovered/Resolved]
  - Hypovolaemic shock [Unknown]
  - Tachycardia [Unknown]
  - Chest pain [Unknown]
  - Hypotension [Unknown]
